FAERS Safety Report 4552903-5 (Version None)
Quarter: 2005Q1

REPORT INFORMATION
  Report Type: 
  Country: None (occurrence: None)
  Receive Date: 20050114
  Receipt Date: 20050105
  Transmission Date: 20050727
  Serious: Yes (Hospitalization)
  Sender: FDA-Public Use
  Company Number: JP-JNJFOC-20050100927

PATIENT
  Age: 37 Year
  Sex: Male

DRUGS (10)
  1. OFLOCET [Suspect]
     Indication: DRUG USE FOR UNKNOWN INDICATION
     Route: 049
  2. LEPONEX [Suspect]
     Indication: DRUG USE FOR UNKNOWN INDICATION
     Route: 049
     Dates: end: 20040929
  3. HUMALOG [Concomitant]
  4. PRAVASTATIN [Concomitant]
  5. AVLOCARDYL [Concomitant]
  6. TARDYFERON [Concomitant]
  7. TRIATEC [Concomitant]
  8. LASILIX [Concomitant]
  9. PREVISCAN [Concomitant]
  10. VITAMINS B1 + B6 [Concomitant]

REACTIONS (1)
  - PULMONARY HYPERTENSION [None]
